FAERS Safety Report 6524568-4 (Version None)
Quarter: 2010Q1

REPORT INFORMATION
  Report Type: 
  Country: None (occurrence: None)
  Receive Date: 20100104
  Receipt Date: 20091223
  Transmission Date: 20100710
  Serious: Yes (Hospitalization)
  Sender: FDA-Public Use
  Company Number: CA-ROCHE-676652

PATIENT
  Age: 29 Year
  Sex: Male
  Weight: 73 kg

DRUGS (4)
  1. RIBAVIRIN [Suspect]
     Route: 048
     Dates: start: 20091120
  2. PEG-INTRON [Suspect]
     Route: 058
     Dates: start: 20091120
  3. WELLBUTRIN XL [Concomitant]
     Indication: DEPRESSION
     Route: 048
  4. MODAFINIL [Concomitant]
     Route: 048

REACTIONS (1)
  - CONVULSION [None]
